FAERS Safety Report 10433144 (Version 2)
Quarter: 2015Q1

REPORT INFORMATION
  Report Type: Spontaneous
  Country: US (occurrence: None)
  Receive Date: 20140815
  Receipt Date: 20150129
  Transmission Date: 20150720
  Serious: No
  Sender: FDA-Public Use
  Company Number: A-US2014-98129

PATIENT
  Age: 63 Year
  Sex: Female

DRUGS (1)
  1. OPSUMIT [Suspect]
     Active Substance: MACITENTAN
     Indication: COR PULMONALE CHRONIC
     Route: 048
     Dates: start: 20140318

REACTIONS (6)
  - Insomnia [None]
  - Photophobia [None]
  - Headache [None]
  - Flushing [None]
  - Rhinorrhoea [None]
  - Lacrimation increased [None]
